FAERS Safety Report 5407469-4 (Version None)
Quarter: 2007Q3

REPORT INFORMATION
  Report Type: 
  Country: None (occurrence: None)
  Receive Date: 20070807
  Receipt Date: 20070731
  Transmission Date: 20080115
  Serious: Yes (Other)
  Sender: FDA-Public Use
  Company Number: FR-PFIZER INC-2007063453

PATIENT
  Age: 78 Year
  Sex: Male

DRUGS (6)
  1. LYRICA [Suspect]
     Indication: DIABETIC NEUROPATHY
  2. INSULATARD [Concomitant]
     Indication: DIABETES MELLITUS
  3. GLUCOPHAGE [Concomitant]
     Indication: DIABETES MELLITUS
  4. DRUG, UNSPECIFIED [Concomitant]
     Indication: HYPERTENSION
  5. ANTITHROMBOTIC AGENTS [Concomitant]
  6. CHOLESTEROL- AND TRIGLYCERIDE REDUCERS [Concomitant]

REACTIONS (4)
  - DIABETES MELLITUS INADEQUATE CONTROL [None]
  - GLYCOSYLATED HAEMOGLOBIN INCREASED [None]
  - INCREASED APPETITE [None]
  - WEIGHT INCREASED [None]
